FAERS Safety Report 4889585-9 (Version None)
Quarter: 2006Q1

REPORT INFORMATION
  Report Type: 
  Country: None (occurrence: None)
  Receive Date: 20060120
  Receipt Date: 20060110
  Transmission Date: 20060701
  Serious: Yes (Hospitalization, Other)
  Sender: FDA-Public Use
  Company Number: 2005158157

PATIENT
  Age: 71 Year
  Sex: Male
  Weight: 56.9 kg

DRUGS (16)
  1. VFEND [Suspect]
     Indication: MYCOTIC CORNEAL ULCER
     Dosage: 320 MG (2 IN 1 D), INTRAVENOUS
     Route: 042
     Dates: start: 20051028, end: 20051116
  2. FLUCONAZOLE [Suspect]
     Indication: PROPHYLAXIS
     Dosage: INTRAOCULAR
     Route: 031
     Dates: start: 20051028
  3. ATROPINE [Concomitant]
  4. OFLOXACIN [Concomitant]
  5. ZOVIRAX [Concomitant]
  6. PRODIF (FOSFLUCONAZOLE) [Suspect]
     Indication: MYCOTIC CORNEAL ULCER
     Dosage: 400 MG, INTRAVENOUS
     Route: 042
     Dates: start: 20051031, end: 20051109
  7. GATIFLOXACIN [Suspect]
     Indication: PROPHYLAXIS
     Dosage: INTRAOCULAR
     Route: 031
     Dates: start: 20051024
  8. SULPELIN (SULBENICILLIN) [Suspect]
     Indication: PROPHYLAXIS
     Dosage: INTRAOCULAR
     Route: 031
  9. VANCOMYCIN [Concomitant]
  10. HYALEIN (HYALURONATE SODIUM) [Concomitant]
  11. VALTRX (VALACICLOVIR HYDROCHLORIDE) [Concomitant]
  12. TIENAM (CILASTATIN, IMIPENEM) [Concomitant]
  13. MAXIPIME [Concomitant]
  14. FLOMOX (CEFCAPENE PIVOXIL HYDROCHLORIDE) [Concomitant]
  15. MINOCYCLINE HCL [Concomitant]
  16. DICLOFENAC SODIUM [Concomitant]

REACTIONS (20)
  - AORTIC VALVE INCOMPETENCE [None]
  - BUNDLE BRANCH BLOCK LEFT [None]
  - BUNDLE BRANCH BLOCK RIGHT [None]
  - CARDIAC FAILURE [None]
  - CARDIAC VALVE DISEASE [None]
  - CONDITION AGGRAVATED [None]
  - CORNEAL EPITHELIUM DISORDER [None]
  - CORNEAL OPACITY [None]
  - EYE INFECTION [None]
  - FLUID RETENTION [None]
  - GAMMA-GLUTAMYLTRANSFERASE INCREASED [None]
  - GENERAL PHYSICAL HEALTH DETERIORATION [None]
  - INFECTION [None]
  - KERATITIS HERPETIC [None]
  - MITRAL VALVE INCOMPETENCE [None]
  - NASOPHARYNGITIS [None]
  - OEDEMA [None]
  - TRICUSPID VALVE INCOMPETENCE [None]
  - ULCERATIVE KERATITIS [None]
  - WEIGHT INCREASED [None]
